FAERS Safety Report 5658707-4 (Version None)
Quarter: 2008Q1

REPORT INFORMATION
  Report Type: 
  Country: None (occurrence: None)
  Receive Date: 20080310
  Receipt Date: 20070328
  Transmission Date: 20080703
  Serious: No
  Sender: FDA-Public Use
  Company Number: US-BAYER-200710944BCC

PATIENT
  Age: 85 Year
  Sex: Male
  Weight: 73 kg

DRUGS (6)
  1. ALEVE [Suspect]
     Indication: NERVE COMPRESSION
     Dosage: AS USED: 440/220 MG  UNIT DOSE: 220 MG
     Route: 048
  2. ALEVE [Suspect]
     Dosage: TOTAL DAILY DOSE: 440 MG  UNIT DOSE: 220 MG
     Route: 048
     Dates: start: 20070301
  3. TRAMADOL HCL [Concomitant]
  4. FLOMAX [Concomitant]
  5. TOPROL-XL [Concomitant]
  6. LEVOTHROID [Concomitant]

REACTIONS (1)
  - OEDEMA PERIPHERAL [None]
